FAERS Safety Report 4994861-5 (Version None)
Quarter: 2006Q2

REPORT INFORMATION
  Report Type: 
  Country: None (occurrence: None)
  Receive Date: 20060503
  Receipt Date: 20060421
  Transmission Date: 20061013
  Serious: Yes (Death)
  Sender: FDA-Public Use
  Company Number: US200604003524

PATIENT
  Age: 45 Year
  Sex: Female

DRUGS (3)
  1. PROZAC [Suspect]
     Indication: DEPRESSION
     Dosage: 20 MG, ORAL
     Route: 048
     Dates: start: 20040101
  2. NALTREXONE HCL [Concomitant]
  3. LITHIUM (LITHIUM) [Concomitant]

REACTIONS (2)
  - DEHYDRATION [None]
  - DRUG TOXICITY [None]
